FAERS Safety Report 9921574 (Version 2)
Quarter: 2014Q1

REPORT INFORMATION
  Report Type: Report from Study
  Country: US (occurrence: US)
  Receive Date: 20140225
  Receipt Date: 20140225
  Transmission Date: 20141002
  Serious: Yes (Hospitalization)
  Sender: FDA-Public Use
  Company Number: US-ROCHE-1314390

PATIENT
  Sex: Female

DRUGS (3)
  1. KADCYLA [Suspect]
     Indication: PRODUCT USED FOR UNKNOWN INDICATION
     Dosage: PER PREVIOUS TX RECORDS
     Route: 065
  2. XELODA [Suspect]
     Indication: BREAST CANCER
     Route: 048
     Dates: start: 201312
  3. TYKERB [Suspect]
     Indication: BREAST CANCER
     Route: 065

REACTIONS (3)
  - Cellulitis [Unknown]
  - Disease progression [Not Recovered/Not Resolved]
  - Therapeutic product ineffective [Unknown]
